FAERS Safety Report 21706444 (Version 1)
Quarter: 2022Q4

REPORT INFORMATION
  Report Type: Spontaneous
  Country: US (occurrence: None)
  Receive Date: 20221208
  Receipt Date: 20221208
  Transmission Date: 20230113
  Serious: Yes (Other)
  Sender: FDA-Public Use
  Company Number: None

PATIENT
  Age: 13 Year
  Sex: Female
  Weight: 54 kg

DRUGS (1)
  1. ALBUTEROL SULFATE [Suspect]
     Active Substance: ALBUTEROL SULFATE
     Indication: Asthma
     Dosage: OTHER ROUTE : INHALED;?
     Route: 050
     Dates: start: 20221208, end: 20221208

REACTIONS (4)
  - Headache [None]
  - Depressed level of consciousness [None]
  - Somnolence [None]
  - Somnolence [None]

NARRATIVE: CASE EVENT DATE: 20221208
